FAERS Safety Report 9304930 (Version 1)
Quarter: 2013Q2

REPORT INFORMATION
  Report Type: Spontaneous
  Country: ZA (occurrence: ZA)
  Receive Date: 20130523
  Receipt Date: 20130523
  Transmission Date: 20140414
  Serious: Yes (Hospitalization)
  Sender: FDA-Public Use
  Company Number: ZA-JNJFOC-20130510592

PATIENT
  Sex: Female

DRUGS (3)
  1. REVELLEX [Suspect]
     Indication: COLITIS ULCERATIVE
     Dosage: LAST DOSE
     Route: 042
     Dates: start: 201304
  2. REVELLEX [Suspect]
     Indication: COLITIS ULCERATIVE
     Route: 042
     Dates: start: 201209
  3. AZATHIOPRINE [Concomitant]
     Route: 065

REACTIONS (2)
  - Lung disorder [Unknown]
  - Lung infection [Unknown]
